FAERS Safety Report 14900676 (Version 10)
Quarter: 2024Q2

REPORT INFORMATION
  Report Type: Spontaneous
  Country: US (occurrence: US)
  Receive Date: 20180516
  Receipt Date: 20240503
  Transmission Date: 20240716
  Serious: No
  Sender: FDA-Public Use
  Company Number: US-PFIZER INC-2018198665

PATIENT
  Age: 60 Year
  Sex: Female

DRUGS (4)
  1. XELJANZ XR [Suspect]
     Active Substance: TOFACITINIB CITRATE
     Indication: Rheumatoid arthritis
     Dosage: 11 MG, 1X/DAY (ONCE DAILY)
     Route: 048
  2. XELJANZ XR [Suspect]
     Active Substance: TOFACITINIB CITRATE
     Dosage: 11 MG, 1X/DAY (ONCE DAILY)
     Route: 048
  3. NORTRIPTYLINE [Concomitant]
     Active Substance: NORTRIPTYLINE
     Indication: Insomnia
     Dosage: UNK
  4. CALCIUM [Concomitant]
     Active Substance: CALCIUM
     Dosage: UNK

REACTIONS (13)
  - Drug ineffective [Unknown]
  - Illness [Recovering/Resolving]
  - Sneezing [Recovering/Resolving]
  - Hypersensitivity [Unknown]
  - Lacrimation increased [Recovering/Resolving]
  - Stress [Unknown]
  - Condition aggravated [Unknown]
  - Influenza [Unknown]
  - Purulent discharge [Unknown]
  - Hand deformity [Unknown]
  - Pain in extremity [Unknown]
  - Heart rate increased [Recovering/Resolving]
  - Blood cholesterol increased [Recovered/Resolved]
